FAERS Safety Report 17652691 (Version 1)
Quarter: 2020Q2

REPORT INFORMATION
  Report Type: Spontaneous
  Country: CN (occurrence: CN)
  Receive Date: 20200409
  Receipt Date: 20200409
  Transmission Date: 20200713
  Serious: Yes (Other)
  Sender: FDA-Public Use
  Company Number: CN-BAYER-2020-055410

PATIENT
  Age: 45 Year
  Sex: Female

DRUGS (6)
  1. AVELOX [Suspect]
     Active Substance: MOXIFLOXACIN HYDROCHLORIDE
     Indication: CORONAVIRUS INFECTION
     Dosage: 400 MG, QD
     Route: 048
     Dates: start: 20200125, end: 20200131
  2. AVELOX [Suspect]
     Active Substance: MOXIFLOXACIN HYDROCHLORIDE
     Indication: CORONAVIRUS INFECTION
     Dosage: 400 MG, QD
     Route: 041
     Dates: start: 20200215, end: 20200225
  3. ARBIDOL [Concomitant]
     Active Substance: UMIFENOVIR
     Indication: CORONAVIRUS INFECTION
     Dosage: UNK
     Dates: start: 20200215
  4. LIAN HUA QING WEN JIAO NANG [Concomitant]
     Indication: CORONAVIRUS INFECTION
     Dosage: UNK
     Route: 048
     Dates: start: 20200125
  5. GANCICLOVIR. [Concomitant]
     Active Substance: GANCICLOVIR
     Indication: CORONAVIRUS INFECTION
     Dosage: UNK
     Route: 048
     Dates: start: 20200125
  6. OXYGEN. [Concomitant]
     Active Substance: OXYGEN
     Dosage: UNK
     Route: 055
     Dates: start: 20200215

REACTIONS (7)
  - Off label use [None]
  - Diarrhoea [None]
  - Drug effective for unapproved indication [None]
  - Heart injury [None]
  - Chest discomfort [None]
  - Off label use [None]
  - Drug effective for unapproved indication [None]

NARRATIVE: CASE EVENT DATE: 20200125
